FAERS Safety Report 17323154 (Version 3)
Quarter: 2020Q2

REPORT INFORMATION
  Report Type: Spontaneous
  Country: US (occurrence: US)
  Receive Date: 20200127
  Receipt Date: 20200407
  Transmission Date: 20200713
  Serious: No
  Sender: FDA-Public Use
  Company Number: US-BIOGEN-2009BI010934

PATIENT
  Age: 51 Year
  Sex: Female

DRUGS (1)
  1. TYSABRI [Suspect]
     Active Substance: NATALIZUMAB
     Indication: MULTIPLE SCLEROSIS
     Route: 042
     Dates: start: 20080827

REACTIONS (16)
  - Menopausal symptoms [Not Recovered/Not Resolved]
  - Cognitive disorder [Unknown]
  - Back pain [Unknown]
  - Feeling hot [Not Recovered/Not Resolved]
  - Musculoskeletal disorder [Unknown]
  - Urinary tract infection [Recovered/Resolved]
  - Insomnia [Recovered/Resolved]
  - Rash papular [Recovered/Resolved]
  - Rash pruritic [Not Recovered/Not Resolved]
  - Pruritus [Recovered/Resolved]
  - Amnesia [Not Recovered/Not Resolved]
  - Cystitis [Recovered/Resolved]
  - Memory impairment [Not Recovered/Not Resolved]
  - Chills [Not Recovered/Not Resolved]
  - Pruritus [Recovered/Resolved]
  - Mental impairment [Unknown]

NARRATIVE: CASE EVENT DATE: 20080827
